FAERS Safety Report 19384473 (Version 1)
Quarter: 2021Q2

REPORT INFORMATION
  Report Type: Spontaneous
  Country: US (occurrence: US)
  Receive Date: 20210607
  Receipt Date: 20210607
  Transmission Date: 20210717
  Serious: Yes (Death, Hospitalization, Other)
  Sender: FDA-Public Use
  Company Number: US-MORPHOSYS US-2021-MOR001107-US

PATIENT
  Age: 81 Year
  Sex: Female
  Weight: 76.19 kg

DRUGS (1)
  1. MONJUVI [Suspect]
     Active Substance: TAFASITAMAB-CXIX
     Indication: LYMPHOMA
     Dosage: 1000 MILLIGRAM
     Route: 042
     Dates: start: 20200917, end: 20201103

REACTIONS (5)
  - Disease progression [Fatal]
  - Asthenia [Unknown]
  - Intracranial mass [Unknown]
  - Blood potassium abnormal [Unknown]
  - Abnormal behaviour [Unknown]
